FAERS Safety Report 5512189-1 (Version None)
Quarter: 2007Q4

REPORT INFORMATION
  Report Type: 
  Country: None (occurrence: None)
  Receive Date: 20071112
  Receipt Date: 20071102
  Transmission Date: 20080405
  Serious: Yes (Hospitalization)
  Sender: FDA-Public Use
  Company Number: PHBS2007JP18299

PATIENT
  Sex: Male

DRUGS (1)
  1. RITALIN [Suspect]
     Indication: DEPRESSION
     Dosage: UNK, UNK
     Route: 048

REACTIONS (1)
  - DEPRESSION [None]
